FAERS Safety Report 8721247 (Version 2)
Quarter: 2012Q4

REPORT INFORMATION
  Report Type: Report from Study
  Country: CA (occurrence: CA)
  Receive Date: 20120813
  Receipt Date: 20121109
  Transmission Date: 20130627
  Serious: Yes (Hospitalization, Other)
  Sender: FDA-Public Use
  Company Number: CA-BRISTOL-MYERS SQUIBB COMPANY-16803181

PATIENT
  Age: 68 Year
  Sex: Female

DRUGS (4)
  1. ORENCIA [Suspect]
     Indication: RHEUMATOID ARTHRITIS
     Dosage: last dose: 22Jun2012,3Aug12
No of inf: 6
Lot#2C80093,Exp:Sep14
     Route: 042
     Dates: start: 20120330
  2. PREDNISONE [Concomitant]
  3. MORPHINE [Concomitant]
  4. TYLENOL #3 [Concomitant]

REACTIONS (4)
  - Thrombosis [Unknown]
  - Arthropathy [Recovering/Resolving]
  - Asthma [Unknown]
  - Chest discomfort [Unknown]
